FAERS Safety Report 25391936 (Version 1)
Quarter: 2025Q2

REPORT INFORMATION
  Report Type: Spontaneous
  Country: FI (occurrence: FI)
  Receive Date: 20250603
  Receipt Date: 20250603
  Transmission Date: 20250716
  Serious: Yes (Disabling)
  Sender: SANOFI AVENTIS
  Company Number: None

PATIENT
  Age: 5 Year
  Sex: Female

DRUGS (1)
  1. DUPIXENT [Suspect]
     Active Substance: DUPILUMAB
     Indication: Dermatitis atopic
     Dosage: 300 MG, Q4W
     Route: 058
     Dates: start: 20250204

REACTIONS (3)
  - Hand dermatitis [Unknown]
  - Eczema eyelids [Unknown]
  - Eczema [Unknown]

NARRATIVE: CASE EVENT DATE: 20250210
